FAERS Safety Report 6999730-7 (Version None)
Quarter: 2010Q3

REPORT INFORMATION
  Report Type: 
  Country: None (occurrence: None)
  Receive Date: 20100920
  Receipt Date: 20100113
  Transmission Date: 20110219
  Serious: No
  Sender: FDA-Public Use
  Company Number: US-ASTRAZENECA-2009UW14345

PATIENT
  Age: 64 Year
  Sex: Female
  Weight: 60.8 kg

DRUGS (4)
  1. SEROQUEL [Suspect]
     Indication: BIPOLAR DISORDER
     Route: 048
  2. SEROQUEL [Suspect]
     Route: 048
  3. DEPAKOTE [Concomitant]
  4. KLONOPIN [Concomitant]
     Indication: ANXIETY

REACTIONS (3)
  - BODY TEMPERATURE FLUCTUATION [None]
  - DYSPNOEA [None]
  - WEIGHT INCREASED [None]
